FAERS Safety Report 7499409-1 (Version None)
Quarter: 2011Q2

REPORT INFORMATION
  Report Type: 
  Country: None (occurrence: None)
  Receive Date: 20110524
  Receipt Date: 20110511
  Transmission Date: 20111010
  Serious: Yes (Hospitalization)
  Sender: FDA-Public Use
  Company Number: PHHY2011MX41643

PATIENT
  Age: 89 Year
  Sex: Male

DRUGS (2)
  1. DIOVAN HCT [Suspect]
     Indication: HYPERTENSION
     Dosage: 1 DF, 320 MG VALS AND 12.5 MG HYDR
     Dates: start: 20100101
  2. DIOVAN HCT [Suspect]
     Dosage: 0.5 DF, 320 MG VALS AND 12.5 MG HYDR
     Dates: start: 20110401

REACTIONS (2)
  - BLOOD PRESSURE INCREASED [None]
  - INFARCTION [None]
